FAERS Safety Report 25390157 (Version 1)
Quarter: 2025Q2

REPORT INFORMATION
  Report Type: Spontaneous
  Country: JP (occurrence: None)
  Receive Date: 20250603
  Receipt Date: 20250603
  Transmission Date: 20250716
  Serious: Yes (Hospitalization, Other)
  Sender: NATCO PHARMA
  Company Number: JP-NATCOUSA-2025-NATCOUSA-000318

PATIENT
  Age: 74 Year
  Sex: Male

DRUGS (7)
  1. LEVOFLOXACIN [Suspect]
     Active Substance: LEVOFLOXACIN
     Indication: Mycobacterial infection
  2. ISONIAZID [Concomitant]
     Active Substance: ISONIAZID
     Indication: Mycobacterial infection
  3. RIFAMPIN [Concomitant]
     Active Substance: RIFAMPIN
     Indication: Mycobacterial infection
  4. ETHAMBUTOL [Concomitant]
     Active Substance: ETHAMBUTOL HYDROCHLORIDE
     Indication: Mycobacterial infection
  5. RIFABUTIN [Concomitant]
     Active Substance: RIFABUTIN
     Indication: Mycobacterial infection
  6. AMLODIPINE [Concomitant]
     Active Substance: AMLODIPINE BESYLATE
     Indication: Hypertension
  7. VALSARTAN [Concomitant]
     Active Substance: VALSARTAN
     Indication: Hypertension

REACTIONS (3)
  - Femoral artery aneurysm [Unknown]
  - Carotid artery aneurysm [Unknown]
  - Infective aneurysm [Unknown]
